FAERS Safety Report 7816046-7 (Version None)
Quarter: 2011Q4

REPORT INFORMATION
  Report Type: 
  Country: None (occurrence: None)
  Receive Date: 20111015
  Receipt Date: 20111006
  Transmission Date: 20120403
  Serious: Yes (Life-Threatening, Hospitalization)
  Sender: FDA-Public Use
  Company Number: JP-ASTRAZENECA-2011SE60745

PATIENT
  Age: 85 Year
  Sex: Female
  Weight: 65 kg

DRUGS (5)
  1. CANDESARTAN CILEXETIL/HYDROCHLOROTHIAZIDE [Suspect]
     Indication: HYPERTENSION
     Dosage: CANDESARTAN CILEXETIL/HCT 16/12.5 MG DAILY
     Route: 048
     Dates: start: 20100201, end: 20110823
  2. L-THYROXIN HENNING [Concomitant]
     Indication: HYPOTHYROIDISM
     Route: 048
     Dates: start: 19980101
  3. MICTONORM [Concomitant]
     Indication: URINARY INCONTINENCE
     Route: 048
     Dates: start: 20050101
  4. OMEPRAZOLE [Concomitant]
     Route: 048
     Dates: start: 20080101
  5. VOLTAREN [Suspect]
     Indication: POLYARTHRITIS
     Route: 048
     Dates: start: 20100601, end: 20110822

REACTIONS (1)
  - RENAL FAILURE ACUTE [None]
